FAERS Safety Report 9925559 (Version 1)
Quarter: 2014Q1

REPORT INFORMATION
  Report Type: Spontaneous
  Country: FR (occurrence: FR)
  Receive Date: 20140226
  Receipt Date: 20140226
  Transmission Date: 20141002
  Serious: Yes (Life-Threatening, Hospitalization)
  Sender: FDA-Public Use
  Company Number: FR-BRISTOL-MYERS SQUIBB COMPANY-20240644

PATIENT
  Age: 81 Year
  Sex: Male

DRUGS (4)
  1. COUMADINE [Suspect]
     Dosage: 1 DF= 1 TO 5 MG
     Route: 048
     Dates: start: 20140117, end: 20140127
  2. HEPARIN SODIUM [Suspect]
     Route: 042
     Dates: start: 201401, end: 20140119
  3. SINTROM [Suspect]
     Route: 048
     Dates: end: 20140106
  4. CALCIPARINE [Suspect]
     Route: 058
     Dates: start: 20140119

REACTIONS (7)
  - Haematoma [Recovering/Resolving]
  - Renal failure acute [Unknown]
  - Hyperkalaemia [Unknown]
  - Anaemia [Not Recovered/Not Resolved]
  - International normalised ratio increased [Recovered/Resolved]
  - Activated partial thromboplastin time prolonged [Recovered/Resolved]
  - Overdose [Unknown]
